FAERS Safety Report 7732723-0 (Version None)
Quarter: 2011Q3

REPORT INFORMATION
  Report Type: 
  Country: None (occurrence: None)
  Receive Date: 20110907
  Receipt Date: 20110830
  Transmission Date: 20111222
  Serious: No
  Sender: FDA-Public Use
  Company Number: US-BIOGENIDEC-2011BI033066

PATIENT
  Age: 40 Year
  Sex: Female

DRUGS (3)
  1. AVONEX [Suspect]
     Route: 030
     Dates: start: 20080529, end: 20090717
  2. AVONEX [Suspect]
     Route: 030
     Dates: start: 20021206, end: 20050823
  3. AVONEX [Suspect]
     Indication: MULTIPLE SCLEROSIS
     Route: 030
     Dates: start: 20091013

REACTIONS (3)
  - CHILLS [None]
  - MUSCLE SPASMS [None]
  - BRUXISM [None]
